APPROVED DRUG PRODUCT: AMOXICILLIN
Active Ingredient: AMOXICILLIN
Strength: 250MG/5ML
Dosage Form/Route: FOR SUSPENSION;ORAL
Application: A065322 | Product #001 | TE Code: AB
Applicant: HIKMA PHARMACEUTICALS
Approved: Jun 19, 2006 | RLD: No | RS: No | Type: RX